FAERS Safety Report 6298418-8 (Version None)
Quarter: 2009Q3

REPORT INFORMATION
  Report Type: 
  Country: None (occurrence: None)
  Receive Date: 20090805
  Receipt Date: 20090727
  Transmission Date: 20100115
  Serious: Yes (Life-Threatening, Hospitalization, Other)
  Sender: FDA-Public Use
  Company Number: FR-ELI_LILLY_AND_COMPANY-FR200907005806

PATIENT
  Age: 43 Year
  Sex: Male

DRUGS (5)
  1. ZYPREXA [Suspect]
     Dosage: 10 MG, 2/D
     Route: 048
     Dates: end: 20090525
  2. HALDOL [Concomitant]
     Dosage: 10 D/F, UNK
     Route: 048
     Dates: end: 20090525
  3. SUBUTEX [Concomitant]
     Dosage: 2 MG, DAILY (1/D)
     Route: 060
  4. TEMESTA [Concomitant]
     Route: 048
  5. CHLORAMINOPHENE [Concomitant]
     Route: 048

REACTIONS (3)
  - CEREBRAL THROMBOSIS [None]
  - EPILEPSY [None]
  - ISCHAEMIC STROKE [None]
